FAERS Safety Report 10038431 (Version 20)
Quarter: 2016Q4

REPORT INFORMATION
  Report Type: Report from Study
  Country: BR (occurrence: BR)
  Receive Date: 20140326
  Receipt Date: 20161206
  Transmission Date: 20170206
  Serious: Yes (Hospitalization, Other)
  Sender: FDA-Public Use
  Company Number: PHHY2014BR016790

PATIENT
  Sex: Female
  Weight: 67 kg

DRUGS (8)
  1. SIMVASTATIN. [Concomitant]
     Active Substance: SIMVASTATIN
     Indication: BLOOD CHOLESTEROL INCREASED
     Dosage: 40 MG, QD
     Route: 048
     Dates: start: 2008
  2. LOSARTAN. [Suspect]
     Active Substance: LOSARTAN
     Indication: BLOOD PRESSURE INCREASED
     Dosage: 100 MG, QD
     Route: 065
     Dates: start: 2010
  3. CABERGOLINE. [Concomitant]
     Active Substance: CABERGOLINE
     Dosage: 5 MG, (2 TABLETS ON TUESDAY AND SATURDAY)
     Route: 048
     Dates: start: 2014
  4. AMLODIPINE [Suspect]
     Active Substance: AMLODIPINE BESYLATE
     Indication: BLOOD PRESSURE INCREASED
     Dosage: UNK UKN, UNK
     Route: 065
     Dates: start: 2011
  5. PREDNISONE. [Concomitant]
     Active Substance: PREDNISONE
     Indication: HORMONE LEVEL ABNORMAL
     Dosage: 5 MG, QD
     Route: 048
     Dates: start: 2010
  6. CABERGOLINE. [Concomitant]
     Active Substance: CABERGOLINE
     Indication: ACROMEGALY
     Dosage: 1 DF, QW2
     Route: 048
     Dates: start: 2013
  7. OMEPRAZOLE. [Concomitant]
     Active Substance: OMEPRAZOLE
     Indication: GASTRITIS
     Dosage: 1 DF, QD
     Route: 048
     Dates: start: 2005
  8. SANDOSTATIN LAR DEPOT [Suspect]
     Active Substance: OCTREOTIDE ACETATE
     Indication: ACROMEGALY
     Dosage: 30 MG, QMO, EVERY 28 DAYS, ONCE A MONTH
     Route: 030
     Dates: start: 201101

REACTIONS (23)
  - Seizure [Unknown]
  - Malaise [Unknown]
  - Hypothyroidism [Unknown]
  - Insulin-like growth factor decreased [Unknown]
  - Memory impairment [Recovering/Resolving]
  - Blood pressure increased [Unknown]
  - Fatigue [Recovered/Resolved]
  - Feeling of despair [Unknown]
  - Blood prolactin decreased [Unknown]
  - Labyrinthitis [Recovering/Resolving]
  - Prehypertension [Unknown]
  - Abdominal discomfort [Unknown]
  - Adrenal insufficiency [Recovered/Resolved]
  - Ocular neoplasm [Unknown]
  - Therapeutic response decreased [Unknown]
  - Weight decreased [Recovered/Resolved]
  - Asthenia [Recovered/Resolved]
  - Hypopituitarism [Recovering/Resolving]
  - Blood growth hormone increased [Unknown]
  - Fatigue [Unknown]
  - Headache [Unknown]
  - Weight increased [Recovering/Resolving]
  - Asthenia [Unknown]

NARRATIVE: CASE EVENT DATE: 2011
